FAERS Safety Report 13273598 (Version 1)
Quarter: 2017Q1

REPORT INFORMATION
  Report Type: Spontaneous
  Country: IE (occurrence: IE)
  Receive Date: 20170227
  Receipt Date: 20170227
  Transmission Date: 20170428
  Serious: Yes (Life-Threatening, Hospitalization)
  Sender: FDA-Public Use
  Company Number: IE-ALLERGAN-1706762US

PATIENT
  Age: 67 Year
  Sex: Male

DRUGS (1)
  1. TRIPTORELIN PAMOATE - BP [Suspect]
     Active Substance: TRIPTORELIN PAMOATE
     Indication: PROSTATE CANCER METASTATIC
     Dosage: UNK, UNKNOWN
     Route: 065

REACTIONS (3)
  - Neoplasm progression [Recovered/Resolved]
  - IIIrd nerve paralysis [Recovered/Resolved]
  - Pituitary haemorrhage [Recovered/Resolved]
